FAERS Safety Report 5690583-6 (Version None)
Quarter: 2008Q1

REPORT INFORMATION
  Report Type: 
  Country: None (occurrence: None)
  Receive Date: 20080331
  Receipt Date: 20080331
  Transmission Date: 20080703
  Serious: Yes (Other)
  Sender: FDA-Public Use
  Company Number: None

PATIENT
  Sex: Female
  Weight: 117.9352 kg

DRUGS (2)
  1. SINGULAIR [Suspect]
     Indication: MULTIPLE ALLERGIES
     Dosage: 10 MG 1 DAILY PO
     Route: 048
     Dates: start: 20080207, end: 20080307
  2. SINGULAIR [Suspect]
     Indication: SINUSITIS
     Dosage: 10 MG 1 DAILY PO
     Route: 048
     Dates: start: 20080207, end: 20080307

REACTIONS (4)
  - ABDOMINAL PAIN UPPER [None]
  - ASTHENIA [None]
  - DEPRESSION [None]
  - SUICIDAL IDEATION [None]
